FAERS Safety Report 19595053 (Version 4)
Quarter: 2022Q1

REPORT INFORMATION
  Report Type: Report from Study
  Country: US (occurrence: US)
  Receive Date: 20210723
  Receipt Date: 20220120
  Transmission Date: 20220423
  Serious: Yes (Other)
  Sender: FDA-Public Use
  Company Number: US-ACADIA PHARMACEUTICALS INC.-ACA-2021-PIM-002438

PATIENT
  Sex: Male

DRUGS (3)
  1. NUPLAZID [Suspect]
     Active Substance: PIMAVANSERIN TARTRATE
     Indication: Parkinson^s disease
     Dosage: 34 MILLIGRAM, QD
     Route: 048
     Dates: start: 202106, end: 2021
  2. NUPLAZID [Suspect]
     Active Substance: PIMAVANSERIN TARTRATE
     Dosage: 34 MILLIGRAM, QD
     Route: 048
     Dates: start: 2021, end: 20220106
  3. LEVOFLOXACIN [Concomitant]
     Active Substance: LEVOFLOXACIN

REACTIONS (6)
  - Pneumonia [Unknown]
  - Product dose omission issue [Recovered/Resolved]
  - Spinal stenosis [Unknown]
  - Product dose omission issue [Unknown]
  - Pain [Unknown]
  - Surgery [Unknown]

NARRATIVE: CASE EVENT DATE: 20210101
